FAERS Safety Report 19988559 (Version 2)
Quarter: 2021Q4

REPORT INFORMATION
  Report Type: Spontaneous
  Country: US (occurrence: US)
  Receive Date: 20211024
  Receipt Date: 20211104
  Transmission Date: 20220304
  Serious: No
  Sender: FDA-Public Use
  Company Number: US-ORGANON-O2110USA001328

PATIENT
  Sex: Female
  Weight: 72.562 kg

DRUGS (1)
  1. NEXPLANON [Suspect]
     Active Substance: ETONOGESTREL
     Dosage: 1 IMPLANT 68 MILLIGRAM EVERY 3 YEARS
     Route: 059

REACTIONS (4)
  - Device issue [Unknown]
  - Complication of device removal [Unknown]
  - Complication associated with device [Unknown]
  - No adverse event [Unknown]
